FAERS Safety Report 7056961-8 (Version None)
Quarter: 2010Q4

REPORT INFORMATION
  Report Type: 
  Country: None (occurrence: None)
  Receive Date: 20101022
  Receipt Date: 20101016
  Transmission Date: 20110411
  Serious: Yes (Hospitalization, Other)
  Sender: FDA-Public Use
  Company Number: US-RB-015442-10

PATIENT
  Sex: Male

DRUGS (1)
  1. SUBOXONE TABLET [Suspect]
     Indication: DRUG DEPENDENCE
     Dosage: DOSING DETAILS UNKNOWN.
     Route: 060
     Dates: start: 20090901

REACTIONS (6)
  - FEELING ABNORMAL [None]
  - HEART RATE IRREGULAR [None]
  - INFECTION [None]
  - OXYGEN SATURATION DECREASED [None]
  - PERICARDITIS [None]
  - SEPSIS [None]
